FAERS Safety Report 6441980-2 (Version None)
Quarter: 2009Q4

REPORT INFORMATION
  Report Type: 
  Country: None (occurrence: None)
  Receive Date: 20091110
  Receipt Date: 20090909
  Transmission Date: 20100525
  Serious: No
  Sender: FDA-Public Use
  Company Number: 1000008745

PATIENT
  Age: 64 Year
  Sex: Male

DRUGS (4)
  1. SAVELLA [Suspect]
     Indication: INFLAMMATION
     Dosage: 12.5 MG (12.5 MG, 1 IN 1 D), ORAL; 25 MG (12.5 MG, 2 IN 1 D), ORAL; 50 MG (25 MG, 2 IN 1 D), ORAL
     Route: 048
     Dates: start: 20090824, end: 20090824
  2. SAVELLA [Suspect]
     Indication: INFLAMMATION
     Dosage: 12.5 MG (12.5 MG, 1 IN 1 D), ORAL; 25 MG (12.5 MG, 2 IN 1 D), ORAL; 50 MG (25 MG, 2 IN 1 D), ORAL
     Route: 048
     Dates: start: 20090825, end: 20090826
  3. SAVELLA [Suspect]
     Indication: INFLAMMATION
     Dosage: 12.5 MG (12.5 MG, 1 IN 1 D), ORAL; 25 MG (12.5 MG, 2 IN 1 D), ORAL; 50 MG (25 MG, 2 IN 1 D), ORAL
     Route: 048
     Dates: start: 20090827, end: 20090830
  4. SAVELLA [Suspect]
     Indication: INFLAMMATION
     Dosage: 12.5 MG (12.5 MG, 1 IN 1 D), ORAL; 25 MG (12.5 MG, 2 IN 1 D), ORAL; 50 MG (25 MG, 2 IN 1 D), ORAL
     Route: 048
     Dates: start: 20090831

REACTIONS (3)
  - HEART RATE INCREASED [None]
  - NAUSEA [None]
  - RETCHING [None]
